FAERS Safety Report 17766479 (Version 1)
Quarter: 2020Q2

REPORT INFORMATION
  Report Type: Spontaneous
  Country: SE (occurrence: SE)
  Receive Date: 20200511
  Receipt Date: 20200511
  Transmission Date: 20200714
  Serious: Yes (Death, Hospitalization, Other)
  Sender: FDA-Public Use
  Company Number: SE-PFIZER INC-2020185797

PATIENT
  Age: 78 Year
  Sex: Female

DRUGS (1)
  1. ATORVASTATIN CALCIUM. [Suspect]
     Active Substance: ATORVASTATIN CALCIUM
     Dosage: UNK

REACTIONS (7)
  - Acute hepatic failure [Fatal]
  - Muscular weakness [Unknown]
  - Cardiac arrest [Fatal]
  - Rhabdomyolysis [Unknown]
  - Myalgia [Unknown]
  - Renal failure [Fatal]
  - Subacute hepatic failure [Fatal]

NARRATIVE: CASE EVENT DATE: 201912
